FAERS Safety Report 7949237-5 (Version None)
Quarter: 2011Q4

REPORT INFORMATION
  Report Type: 
  Country: None (occurrence: None)
  Receive Date: 20111130
  Receipt Date: 20111118
  Transmission Date: 20120403
  Serious: Yes (Death)
  Sender: FDA-Public Use
  Company Number: ES-ROCHE-1014768

PATIENT
  Age: 41 Year
  Sex: Male

DRUGS (1)
  1. PEGASYS [Suspect]
     Indication: HEPATITIS C
     Dosage: 180 MCG.
     Route: 065
     Dates: start: 20100101

REACTIONS (2)
  - MULTI-ORGAN FAILURE [None]
  - SEPSIS [None]
